FAERS Safety Report 8761113 (Version 2)
Quarter: 2012Q4

REPORT INFORMATION
  Report Type: Report from Study
  Country: US (occurrence: US)
  Receive Date: 20120830
  Receipt Date: 20121011
  Transmission Date: 20130627
  Serious: Yes (Hospitalization)
  Sender: FDA-Public Use
  Company Number: US-009507513-1208USA008376

PATIENT

DRUGS (3)
  1. DEXAMETHASONE [Suspect]
     Indication: CHRONIC LYMPHOCYTIC LEUKAEMIA
     Dosage: 10 mg, Day 1 and  2 q 28 days
     Route: 042
     Dates: start: 20120712, end: 20120803
  2. RITUXAN [Suspect]
     Indication: CHRONIC LYMPHOCYTIC LEUKAEMIA
     Dosage: 680 mg, qm
     Route: 042
     Dates: start: 20120712, end: 20120802
  3. TREANDA [Suspect]
     Indication: CHRONIC LYMPHOCYTIC LEUKAEMIA
     Dosage: 200 mg, Day 1 and 2 q 28 days
     Route: 042
     Dates: start: 20120712, end: 20120803

REACTIONS (3)
  - Chest pain [Recovered/Resolved]
  - Abdominal pain [Recovered/Resolved]
  - Back pain [Recovered/Resolved]
